FAERS Safety Report 9593132 (Version 1)
Quarter: 2013Q4

REPORT INFORMATION
  Report Type: Spontaneous
  Country: US (occurrence: US)
  Receive Date: 20131004
  Receipt Date: 20131004
  Transmission Date: 20140711
  Serious: Yes (Hospitalization)
  Sender: FDA-Public Use
  Company Number: US-SA-2013SA097060

PATIENT
  Age: 63 Year
  Sex: Male
  Weight: 147 kg

DRUGS (19)
  1. PLAVIX [Suspect]
     Indication: CARDIAC DISORDER
     Route: 065
     Dates: end: 2005
  2. SYMLIN [Suspect]
     Indication: TYPE 2 DIABETES MELLITUS
     Route: 058
     Dates: start: 20050629, end: 20050824
  3. LEVAQUIN [Suspect]
     Indication: DIABETIC FOOT INFECTION
     Route: 065
     Dates: start: 20050824
  4. ASA [Suspect]
     Indication: CARDIAC DISORDER
     Route: 065
     Dates: end: 2005
  5. NOVOLOG [Concomitant]
     Indication: TYPE 2 DIABETES MELLITUS
     Dates: start: 2004
  6. LANTUS [Concomitant]
     Indication: TYPE 2 DIABETES MELLITUS
     Dates: start: 2004
  7. AVANDIA [Concomitant]
     Indication: TYPE 2 DIABETES MELLITUS
  8. NIASPAN [Concomitant]
     Indication: BLOOD CHOLESTEROL DECREASED
     Dates: start: 2004
  9. TRAZODONE [Concomitant]
     Indication: SLEEP DISORDER
  10. OXAPROZIN [Concomitant]
     Indication: ARTHRITIS
     Dates: start: 2003, end: 2005
  11. ALLOPURINOL [Concomitant]
     Indication: GOUT
  12. ATENOLOL [Concomitant]
     Indication: HYPERTENSION
  13. FOLIC ACID [Concomitant]
  14. FUROSEMIDE [Concomitant]
     Indication: FLUID RETENTION
     Dates: start: 2004
  15. ACTONEL [Concomitant]
     Indication: OSTEOPOROSIS
     Dates: start: 2004, end: 20050825
  16. CALCIUM/VITAMIN D [Concomitant]
     Indication: OSTEOPOROSIS
     Dates: start: 2004
  17. ATACAND [Concomitant]
     Indication: TYPE 2 DIABETES MELLITUS
  18. AUGMENTIN [Concomitant]
     Dates: start: 20050727, end: 20050815
  19. LEVOXYL [Concomitant]

REACTIONS (9)
  - Gastritis [Recovered/Resolved]
  - Dehydration [Recovered/Resolved]
  - Renal failure acute [Not Recovered/Not Resolved]
  - Pancreatitis acute [Recovered/Resolved]
  - Diabetic foot infection [Recovered/Resolved]
  - Oesophagitis [Recovered/Resolved]
  - Asthenia [Recovered/Resolved]
  - Fatigue [Recovered/Resolved]
  - Nausea [Recovered/Resolved]
